FAERS Safety Report 5168773-0 (Version None)
Quarter: 2006Q4

REPORT INFORMATION
  Report Type: 
  Country: None (occurrence: None)
  Receive Date: 20061211
  Receipt Date: 20061204
  Transmission Date: 20070319
  Serious: Yes (Other)
  Sender: FDA-Public Use
  Company Number: US-JNJFOC-20061201473

PATIENT
  Sex: Female
  Weight: 63.5 kg

DRUGS (3)
  1. EXTRA STRENGTH TYLENOL [Suspect]
     Indication: INSOMNIA
     Dosage: UNKNOWN DOSE, EVERY PM
  2. BETA BLOCKER [Concomitant]
     Indication: GLAUCOMA
     Route: 031
  3. ACIPHEX [Concomitant]
     Indication: DYSPEPSIA

REACTIONS (1)
  - VISUAL ACUITY REDUCED [None]
